FAERS Safety Report 5674660-1 (Version None)
Quarter: 2008Q1

REPORT INFORMATION
  Report Type: 
  Country: None (occurrence: None)
  Receive Date: 20080320
  Receipt Date: 20080314
  Transmission Date: 20080703
  Serious: Yes (Hospitalization)
  Sender: FDA-Public Use
  Company Number: A0715540A

PATIENT
  Age: 60 Year
  Sex: Female

DRUGS (2)
  1. COREG [Suspect]
     Dosage: 25MG TWICE PER DAY
     Route: 048
     Dates: start: 20050101, end: 20080304
  2. ZESTRIL [Concomitant]

REACTIONS (2)
  - IDIOPATHIC THROMBOCYTOPENIC PURPURA [None]
  - PLATELET COUNT DECREASED [None]
